FAERS Safety Report 9959110 (Version 1)
Quarter: 2014Q1

REPORT INFORMATION
  Report Type: Report from Study
  Country: US (occurrence: US)
  Receive Date: 20140305
  Receipt Date: 20140305
  Transmission Date: 20141002
  Serious: No
  Sender: FDA-Public Use
  Company Number: US-ABBVIE-13P-163-1104457-00

PATIENT
  Age: 47 Year
  Sex: Female
  Weight: 95.34 kg

DRUGS (4)
  1. HUMIRA [Suspect]
     Indication: PSORIASIS
     Route: 058
  2. HUMIRA [Suspect]
     Route: 058
  3. MOBIC [Concomitant]
     Indication: PAIN
  4. KLONOPIN [Concomitant]
     Indication: DEPRESSION

REACTIONS (2)
  - Joint swelling [Recovered/Resolved]
  - Local swelling [Recovered/Resolved]
